FAERS Safety Report 19466204 (Version 2)
Quarter: 2021Q3

REPORT INFORMATION
  Report Type: Spontaneous
  Country: US (occurrence: US)
  Receive Date: 20210627
  Receipt Date: 20210701
  Transmission Date: 20211014
  Serious: Yes (Other)
  Sender: FDA-Public Use
  Company Number: US-AMGEN-USASP2021096045

PATIENT
  Age: 59 Year
  Sex: Female

DRUGS (2)
  1. OZEMPIC [Concomitant]
     Active Substance: SEMAGLUTIDE
     Indication: DIABETES MELLITUS
     Dosage: UNK
  2. ENBREL [Suspect]
     Active Substance: ETANERCEPT
     Indication: RHEUMATOID ARTHRITIS
     Dosage: UNK UNK, QWK
     Route: 065
     Dates: start: 2021

REACTIONS (3)
  - Wrong technique in product usage process [Unknown]
  - Rotator cuff repair [Unknown]
  - Device difficult to use [Unknown]

NARRATIVE: CASE EVENT DATE: 2021
